FAERS Safety Report 24989341 (Version 1)
Quarter: 2025Q1

REPORT INFORMATION
  Report Type: Spontaneous
  Country: US (occurrence: US)
  Receive Date: 20250220
  Receipt Date: 20250220
  Transmission Date: 20250409
  Serious: Yes (Hospitalization)
  Sender: ROCHE
  Company Number: US-ROCHE-10000209080

PATIENT
  Sex: Male

DRUGS (1)
  1. XOLAIR [Suspect]
     Active Substance: OMALIZUMAB
     Indication: Urticaria
     Dosage: EVERY 2 WEEKS
     Route: 058
     Dates: start: 202405

REACTIONS (3)
  - Joint dislocation [Unknown]
  - Anaphylactic reaction [Unknown]
  - Mastocytosis [Unknown]
